FAERS Safety Report 9477849 (Version 1)
Quarter: 2013Q3

REPORT INFORMATION
  Report Type: Spontaneous
  Country: CH (occurrence: None)
  Receive Date: 20130822
  Receipt Date: 20130822
  Transmission Date: 20140515
  Serious: Yes (Death, Other)
  Sender: FDA-Public Use
  Company Number: 20130441

PATIENT
  Age: 48 Year
  Sex: Female

DRUGS (4)
  1. FERINJECT [Suspect]
     Indication: IRON DEFICIENCY ANAEMIA
     Dosage: 1000MG OVER 15MIN
     Dates: start: 20121127, end: 20130116
  2. MORPHINE [Suspect]
     Indication: PRODUCT USED FOR UNKNOWN INDICATION
  3. DIHYDROCODEINE [Concomitant]
  4. LANSOPRAZOLE [Concomitant]

REACTIONS (5)
  - Thrombocytopenia [None]
  - Aplasia [None]
  - Headache [None]
  - Dizziness [None]
  - Nausea [None]
